FAERS Safety Report 22846047 (Version 5)
Quarter: 2024Q3

REPORT INFORMATION
  Report Type: Spontaneous
  Country: US (occurrence: US)
  Receive Date: 20230821
  Receipt Date: 20240704
  Transmission Date: 20241017
  Serious: Yes (Disabling, Other)
  Sender: AMGEN
  Company Number: US-HORIZON THERAPEUTICS-HZN-2023-006269

PATIENT
  Age: 62 Year
  Sex: Female

DRUGS (33)
  1. TEPEZZA [Suspect]
     Active Substance: TEPROTUMUMAB-TRBW
     Indication: Endocrine ophthalmopathy
     Dosage: FIRST INFUSION
     Route: 042
     Dates: start: 20210610
  2. TEPEZZA [Suspect]
     Active Substance: TEPROTUMUMAB-TRBW
     Indication: Graves^ disease
     Dosage: 912 MILLIGRAM ( FIRST INFUSION OF FIRST ROUND)
     Route: 042
     Dates: start: 20210507
  3. TEPEZZA [Suspect]
     Active Substance: TEPROTUMUMAB-TRBW
     Dosage: 1820 MG, EVERY 3 WEEKS, SECOND INFUSION OF FIRST ROUND
     Route: 042
     Dates: start: 20210528
  4. TEPEZZA [Suspect]
     Active Substance: TEPROTUMUMAB-TRBW
     Dosage: 1832 MG, EVERY 3 WEEKS, THIRD INFUSION OF FIRST ROUND
     Route: 042
     Dates: start: 20210618
  5. TEPEZZA [Suspect]
     Active Substance: TEPROTUMUMAB-TRBW
     Dosage: 1828 MG, EVERY 3 WEEKS, FOURTH INFUSION OF FIRST ROUND
     Route: 042
     Dates: start: 20210723
  6. TEPEZZA [Suspect]
     Active Substance: TEPROTUMUMAB-TRBW
     Dosage: 1806 MG, EVERY 3 WEEKS, FIFTH INFUSION OF FIRST ROUND
     Route: 042
     Dates: start: 20210813
  7. TEPEZZA [Suspect]
     Active Substance: TEPROTUMUMAB-TRBW
     Dosage: 1806 MG, EVERY 3 WEEKS, SIXTH INFUSION OF FIRST ROUND
     Route: 042
     Dates: start: 20210903
  8. TEPEZZA [Suspect]
     Active Substance: TEPROTUMUMAB-TRBW
     Dosage: 1820 MG, EVERY 3 WEEKS, SEVENTH INFUSION OF FIRST ROUND
     Route: 042
     Dates: start: 20210924
  9. TEPEZZA [Suspect]
     Active Substance: TEPROTUMUMAB-TRBW
     Dosage: 1820 MG, EVERY 3 WEEKS, EIGHTH INFUSION OF FIRST ROUND
     Route: 042
     Dates: start: 20211015
  10. TEPEZZA [Suspect]
     Active Substance: TEPROTUMUMAB-TRBW
     Dosage: 897 MG, FIRST INFUSION OF SECOND ROUND
     Route: 042
     Dates: start: 20220614
  11. TEPEZZA [Suspect]
     Active Substance: TEPROTUMUMAB-TRBW
     Dosage: 1800 MG, EVERY 3 WEEKS, SECOND INFUSION OF SECOND ROUND
     Route: 042
     Dates: start: 20220715
  12. TEPEZZA [Suspect]
     Active Substance: TEPROTUMUMAB-TRBW
     Dosage: 1796 MG, EVERY 3 WEEKS, THIRD INFUSION OF SECOND ROUND
     Route: 042
     Dates: start: 20220725
  13. TEPEZZA [Suspect]
     Active Substance: TEPROTUMUMAB-TRBW
     Dosage: 1796 MG, EVERY 3 WEEKS FOURTH INFUSION OF SECOND ROUND
     Route: 042
     Dates: start: 20220815
  14. TEPEZZA [Suspect]
     Active Substance: TEPROTUMUMAB-TRBW
     Dosage: 1724 MG, EVERY 3 WEEKS, FIFTH INFUSION OF SECOND ROUND
     Route: 042
     Dates: start: 20220906
  15. TEPEZZA [Suspect]
     Active Substance: TEPROTUMUMAB-TRBW
     Dosage: 1724 MG, EVERY 3 WEEKS, SIXTH INFUSION OF SECOND ROUND
     Route: 042
     Dates: start: 20220927
  16. TEPEZZA [Suspect]
     Active Substance: TEPROTUMUMAB-TRBW
     Dosage: 1774 MG, EVERY 3 WEEKS, SEVENTH INFUSION OF SECOND ROUND
     Route: 042
     Dates: start: 20221017
  17. TEPEZZA [Suspect]
     Active Substance: TEPROTUMUMAB-TRBW
     Dosage: 1772 MG, EVERY 3 WEEKS, EIGHTH INFUSION OF SECOND ROUND
     Route: 042
     Dates: start: 20221107
  18. VITAMINS [Concomitant]
     Active Substance: VITAMINS
     Route: 048
  19. VITAMIN D NOS [Concomitant]
     Active Substance: CHOLECALCIFEROL\ERGOCALCIFEROL
     Route: 048
  20. MAGNESIUM [Concomitant]
     Active Substance: MAGNESIUM
     Route: 048
  21. METHIMAZOLE [Concomitant]
     Active Substance: METHIMAZOLE
     Route: 048
  22. OMEPRAZOLE [Concomitant]
     Active Substance: OMEPRAZOLE
     Route: 048
  23. LUTEIN [Concomitant]
     Active Substance: LUTEIN
     Route: 048
  24. GABAPENTIN [Concomitant]
     Active Substance: GABAPENTIN
  25. DORZOLAMIDE\TIMOLOL [Concomitant]
     Active Substance: DORZOLAMIDE\TIMOLOL
  26. CYCLOBENZAPRINE HYDROCHLORIDE [Concomitant]
     Active Substance: CYCLOBENZAPRINE HYDROCHLORIDE
  27. OMEGA 3 [Concomitant]
     Active Substance: CAPSAICIN
  28. HERBALS\TURMERIC [Concomitant]
     Active Substance: HERBALS\TURMERIC
  29. VITAMIN C [Concomitant]
     Active Substance: ASCORBIC ACID
  30. VITAMIN E [Concomitant]
     Active Substance: .ALPHA.-TOCOPHEROL
  31. SUMATRIPTAN [Concomitant]
     Active Substance: SUMATRIPTAN
     Dosage: 100 MG
  32. TYLENOL [Concomitant]
     Active Substance: ACETAMINOPHEN
  33. FISH OIL [Concomitant]
     Active Substance: FISH OIL

REACTIONS (21)
  - Disability [Not Recovered/Not Resolved]
  - Physical disability [Not Recovered/Not Resolved]
  - Deafness permanent [Not Recovered/Not Resolved]
  - Cataract nuclear [Unknown]
  - Injury [Not Recovered/Not Resolved]
  - Pain [Not Recovered/Not Resolved]
  - Anxiety [Not Recovered/Not Resolved]
  - Emotional distress [Not Recovered/Not Resolved]
  - Discomfort [Not Recovered/Not Resolved]
  - Concomitant disease aggravated [Not Recovered/Not Resolved]
  - Quality of life decreased [Not Recovered/Not Resolved]
  - Eyelid oedema [Unknown]
  - Ear discomfort [Unknown]
  - Economic problem [Not Recovered/Not Resolved]
  - Diplopia [Not Recovered/Not Resolved]
  - Eyelid ptosis [Unknown]
  - Tinnitus [Not Recovered/Not Resolved]
  - Off label use [Unknown]
  - Eyelid retraction [Unknown]
  - Chalazion [Unknown]
  - Eyelid pain [Unknown]

NARRATIVE: CASE EVENT DATE: 20220101
